FAERS Safety Report 6762229-7 (Version None)
Quarter: 2010Q2

REPORT INFORMATION
  Report Type: 
  Country: None (occurrence: None)
  Receive Date: 20100604
  Receipt Date: 20100420
  Transmission Date: 20101027
  Serious: Yes (Hospitalization)
  Sender: FDA-Public Use
  Company Number: 20100420CINRY1458

PATIENT
  Age: 28 Year
  Sex: Female

DRUGS (2)
  1. CINRYZE [Suspect]
     Indication: HEREDITARY ANGIOEDEMA
     Dosage: 1000 UNIT, 2 IN 1 WK), INTRAVENOUS
     Route: 042
     Dates: start: 20090601
  2. CINRYZE [Suspect]
     Indication: PROPHYLAXIS
     Dosage: 1000 UNIT, 2 IN 1 WK), INTRAVENOUS
     Route: 042
     Dates: start: 20090601

REACTIONS (3)
  - DYSPNOEA [None]
  - HEREDITARY ANGIOEDEMA [None]
  - SEASONAL ALLERGY [None]
